FAERS Safety Report 7279679-5 (Version None)
Quarter: 2011Q1

REPORT INFORMATION
  Report Type: 
  Country: None (occurrence: None)
  Receive Date: 20110208
  Receipt Date: 20110203
  Transmission Date: 20110831
  Serious: Yes (Other)
  Sender: FDA-Public Use
  Company Number: IE-AMGEN-IRLSP2011006601

PATIENT
  Sex: Female

DRUGS (5)
  1. TAXOTERE [Concomitant]
  2. ELTROXIN [Concomitant]
  3. NEULASTA [Suspect]
     Indication: CHEMOTHERAPY
     Dosage: 6 MG, 3 TIMES/WK
     Route: 058
     Dates: start: 20101223
  4. IMODIUM                            /00384302/ [Concomitant]
  5. CYCLOPHOSPHAMIDE [Concomitant]

REACTIONS (4)
  - MEMORY IMPAIRMENT [None]
  - NAUSEA [None]
  - DIZZINESS [None]
  - PAIN [None]
